FAERS Safety Report 7485839-0 (Version None)
Quarter: 2011Q2

REPORT INFORMATION
  Report Type: 
  Country: None (occurrence: None)
  Receive Date: 20110509
  Receipt Date: 20110428
  Transmission Date: 20111010
  Serious: Yes (Hospitalization)
  Sender: FDA-Public Use
  Company Number: DSA_45515_2011

PATIENT
  Sex: Male

DRUGS (2)
  1. CLONIDINE [Suspect]
     Indication: BLOOD PRESSURE INCREASED
     Dosage: (DF)
  2. CARDIZEM [Suspect]
     Indication: BLOOD PRESSURE INCREASED
     Dosage: (DF)

REACTIONS (3)
  - DRUG INEFFECTIVE [None]
  - OBESITY SURGERY [None]
  - BLOOD PRESSURE INCREASED [None]
